FAERS Safety Report 5828932-8 (Version None)
Quarter: 2008Q3

REPORT INFORMATION
  Report Type: 
  Country: None (occurrence: None)
  Receive Date: 20080731
  Receipt Date: 20080716
  Transmission Date: 20090109
  Serious: Yes (Hospitalization)
  Sender: FDA-Public Use
  Company Number: PHHY2008JP13732

PATIENT
  Sex: Female

DRUGS (4)
  1. COMTAN [Suspect]
     Indication: PARKINSON'S DISEASE
     Dosage: 100 MG/DAY
     Route: 048
     Dates: start: 20080707
  2. FP [Suspect]
     Indication: PARKINSON'S DISEASE
     Dosage: 2.5 MG/DAY
     Dates: start: 20080101
  3. CARBIDOPA + LEVODOPA [Concomitant]
     Indication: PARKINSON'S DISEASE
     Dosage: 150 MG, UNK
  4. PRAMIPEXOLE DIHYDROCHLORIDE [Concomitant]
     Indication: PARKINSON'S DISEASE
     Dosage: 1.5 MG, UNK

REACTIONS (3)
  - GAIT DISTURBANCE [None]
  - IMMOBILE [None]
  - PARKINSON'S DISEASE [None]
